FAERS Safety Report 9308485 (Version 1)
Quarter: 2013Q2

REPORT INFORMATION
  Report Type: Spontaneous
  Country: US (occurrence: US)
  Receive Date: 20130524
  Receipt Date: 20130524
  Transmission Date: 20140414
  Serious: Yes (Hospitalization)
  Sender: FDA-Public Use
  Company Number: US-ROCHE-1226034

PATIENT
  Age: 22 Year
  Sex: Female
  Weight: 63.56 kg

DRUGS (9)
  1. ACTEMRA [Suspect]
     Indication: RHEUMATOID ARTHRITIS
     Route: 065
  2. ACTEMRA [Suspect]
     Indication: ANKYLOSING SPONDYLITIS
  3. ENBREL [Suspect]
     Indication: ANKYLOSING SPONDYLITIS
     Route: 065
  4. ENBREL [Suspect]
     Indication: RHEUMATOID ARTHRITIS
  5. HUMIRA [Suspect]
     Indication: ANKYLOSING SPONDYLITIS
     Route: 065
     Dates: start: 200605, end: 200701
  6. HUMIRA [Suspect]
     Indication: RHEUMATOID ARTHRITIS
     Route: 065
     Dates: start: 200711, end: 200801
  7. FISH OIL [Concomitant]
     Indication: PROPHYLAXIS
     Route: 065
  8. TRIPLEFLEX [Concomitant]
     Indication: SUPPLEMENTATION THERAPY
     Route: 065
  9. CELEBREX [Concomitant]
     Indication: RHEUMATOID ARTHRITIS
     Route: 065

REACTIONS (7)
  - Pelvic inflammatory disease [Recovered/Resolved]
  - Alopecia [Recovered/Resolved]
  - Skin wound [Recovered/Resolved]
  - Nausea [Recovered/Resolved]
  - Vomiting [Recovered/Resolved]
  - Fatigue [Unknown]
  - Arthralgia [Unknown]
